FAERS Safety Report 7331947-4 (Version None)
Quarter: 2011Q1

REPORT INFORMATION
  Report Type: 
  Country: None (occurrence: None)
  Receive Date: 20110304
  Receipt Date: 20110302
  Transmission Date: 20110831
  Serious: Yes (Life-Threatening)
  Sender: FDA-Public Use
  Company Number: DE-ELI_LILLY_AND_COMPANY-DE201103000388

PATIENT
  Age: 67 Year
  Sex: Male
  Weight: 80 kg

DRUGS (5)
  1. PLACEBO [Suspect]
     Indication: ACUTE MYOCARDIAL INFARCTION
     Dosage: UNK, ONCE AS 1ST LOADING DOSE
     Route: 048
     Dates: start: 20110222, end: 20110222
  2. PRASUGREL HYDROCHLORIDE [Suspect]
     Indication: ACUTE MYOCARDIAL INFARCTION
     Dosage: 60 MG, ONCE AS 2ND LOADING DOSE
     Route: 048
     Dates: start: 20110222, end: 20110222
  3. HEPARIN [Concomitant]
     Indication: ACUTE MYOCARDIAL INFARCTION
     Dosage: 5000 D/F, UNK
     Route: 042
     Dates: start: 20110222, end: 20110222
  4. GLYCEROLTRINITRAT [Concomitant]
     Indication: ANGINA PECTORIS
     Dosage: 2 D/F, UNK
     Dates: start: 20110222, end: 20110222
  5. ASPIRIN [Concomitant]
     Indication: ACUTE MYOCARDIAL INFARCTION
     Dosage: 500 MG, UNK
     Route: 042
     Dates: start: 20110222, end: 20110222

REACTIONS (1)
  - CARDIOGENIC SHOCK [None]
